FAERS Safety Report 5546822-5 (Version None)
Quarter: 2007Q4

REPORT INFORMATION
  Report Type: 
  Country: None (occurrence: None)
  Receive Date: 20071206
  Receipt Date: 20071121
  Transmission Date: 20080405
  Serious: Yes (Hospitalization)
  Sender: FDA-Public Use
  Company Number: S07-ITA-05953-01

PATIENT
  Age: 74 Year
  Sex: Female

DRUGS (4)
  1. MONUROL [Suspect]
     Indication: CYSTITIS
     Dosage: 3 G ONCE PO
     Route: 048
     Dates: start: 20071022, end: 20071022
  2. ORAL ANTIDIABETICS [Concomitant]
  3. HYPOTENSIVE AGENTS (NOS) [Concomitant]
  4. CARDIOPROTECTIVE AGENTS (NOS) [Concomitant]

REACTIONS (3)
  - CYANOSIS [None]
  - DYSPNOEA [None]
  - NO REACTION ON PREVIOUS EXPOSURE TO DRUG [None]
